FAERS Safety Report 21172411 (Version 1)
Quarter: 2022Q3

REPORT INFORMATION
  Report Type: Spontaneous
  Country: US (occurrence: None)
  Receive Date: 20220803
  Receipt Date: 20220803
  Transmission Date: 20221026
  Serious: Yes (Other)
  Sender: FDA-Public Use
  Company Number: None

PATIENT
  Age: 24 Year
  Sex: Female
  Weight: 83.25 kg

DRUGS (7)
  1. CIPROFLOXACIN [Suspect]
     Active Substance: CIPROFLOXACIN
     Indication: Abdominal infection
     Route: 048
     Dates: start: 20220526, end: 20220528
  2. LEVOTHYROXINE [Concomitant]
     Active Substance: LEVOTHYROXINE
  3. DESONIDE [Concomitant]
     Active Substance: DESONIDE
  4. EUCRISA [Concomitant]
     Active Substance: CRISABOROLE
  5. CLOBETASOL PROPIONATE [Concomitant]
     Active Substance: CLOBETASOL PROPIONATE
  6. MELATONIN [Concomitant]
     Active Substance: MELATONIN
  7. ARNICARE [Concomitant]
     Active Substance: HOMEOPATHICS

REACTIONS (5)
  - Tendonitis [None]
  - Bedridden [None]
  - Pain [None]
  - Tendon pain [None]
  - Loss of personal independence in daily activities [None]

NARRATIVE: CASE EVENT DATE: 20220528
